FAERS Safety Report 25753559 (Version 1)
Quarter: 2025Q3

REPORT INFORMATION
  Report Type: Spontaneous
  Country: US (occurrence: US)
  Receive Date: 20250903
  Receipt Date: 20250903
  Transmission Date: 20251021
  Serious: No
  Sender: DAIICHI
  Company Number: US-DSJP-DS-2025-161612-US

PATIENT
  Sex: Female

DRUGS (1)
  1. DATROWAY [Suspect]
     Active Substance: DATOPOTAMAB DERUXTECAN-DLNK
     Indication: Non-small cell lung cancer
     Dosage: UNK UNK, ONCE EVERY 3 WK
     Route: 065
     Dates: start: 20250821, end: 20250821

REACTIONS (2)
  - Oropharyngeal discomfort [Recovered/Resolved]
  - Throat irritation [Recovered/Resolved]

NARRATIVE: CASE EVENT DATE: 20250821
